FAERS Safety Report 4491115-0 (Version None)
Quarter: 2004Q4

REPORT INFORMATION
  Report Type: 
  Country: None (occurrence: None)
  Receive Date: 20041102
  Receipt Date: 20040601
  Transmission Date: 20050328
  Serious: Yes (Death, Hospitalization)
  Sender: FDA-Public Use
  Company Number: ITWYE793101JUN04

PATIENT
  Sex: Male

DRUGS (1)
  1. ENBREL [Suspect]
     Indication: DRUG USE FOR UNKNOWN INDICATION
     Dosage: NOT PROVIDED

REACTIONS (2)
  - CARDIAC FAILURE ACUTE [None]
  - ENDOCARDITIS BACTERIAL [None]
